FAERS Safety Report 8063333-6 (Version None)
Quarter: 2012Q1

REPORT INFORMATION
  Report Type: 
  Country: None (occurrence: None)
  Receive Date: 20120123
  Receipt Date: 20120117
  Transmission Date: 20120608
  Serious: Yes (Other)
  Sender: FDA-Public Use
  Company Number: BR-ROCHE-1029653

PATIENT
  Sex: Female
  Weight: 57 kg

DRUGS (7)
  1. MABTHERA [Suspect]
     Indication: RHEUMATOID ARTHRITIS
     Route: 042
     Dates: start: 20101001
  2. GENERIC COMPONENT(S) NOT KNOWN [Suspect]
     Indication: PREMEDICATION
  3. CALCIUM [Concomitant]
  4. ARAVA [Concomitant]
  5. METHOTREXATE [Concomitant]
  6. METFFORMIN HYDROCHLORIDE [Concomitant]
  7. INSULIN [Concomitant]

REACTIONS (12)
  - SYNCOPE [None]
  - DIABETES MELLITUS [None]
  - SALIVARY HYPERSECRETION [None]
  - BLOOD PRESSURE INCREASED [None]
  - MALAISE [None]
  - PALPITATIONS [None]
  - HYPERSENSITIVITY [None]
  - HYPOAESTHESIA ORAL [None]
  - NAUSEA [None]
  - SPEECH DISORDER [None]
  - PYREXIA [None]
  - HEAD DISCOMFORT [None]
